FAERS Safety Report 10917077 (Version 2)
Quarter: 2015Q1

REPORT INFORMATION
  Report Type: Spontaneous
  Country: NO (occurrence: NO)
  Receive Date: 20150316
  Receipt Date: 20150331
  Transmission Date: 20150721
  Serious: Yes (Hospitalization)
  Sender: FDA-Public Use
  Company Number: PHHY2015NO027013

PATIENT
  Age: 68 Year
  Sex: Female
  Weight: 75.5 kg

DRUGS (7)
  1. ALDARA [Concomitant]
     Active Substance: IMIQUIMOD
     Indication: PIGMENTATION DISORDER
     Route: 065
  2. VOLTAREN [Concomitant]
     Active Substance: DICLOFENAC SODIUM
     Indication: PRODUCT USED FOR UNKNOWN INDICATION
     Dosage: UNK (1-2 TABLETS WHEN NEEDED)
     Route: 065
  3. CALCIGRAN [Concomitant]
     Indication: PRODUCT USED FOR UNKNOWN INDICATION
     Dosage: 1 TABLET, 6 DAYS A WEEK(STRENGTH 500 MG/400 IE)
  4. ORUDIS [Concomitant]
     Active Substance: KETOPROFEN
     Indication: PRODUCT USED FOR UNKNOWN INDICATION
     Route: 065
  5. ALENDRONATE [Suspect]
     Active Substance: ALENDRONATE SODIUM
     Indication: OSTEOPOROSIS PROPHYLAXIS
     Dosage: 70 MG, QW
     Route: 048
     Dates: start: 2012, end: 2014
  6. FOSAMAX [Suspect]
     Active Substance: ALENDRONATE SODIUM
     Indication: OSTEOPOROSIS PROPHYLAXIS
     Dosage: 70 MG, QW
     Route: 048
     Dates: start: 2002, end: 201203
  7. TRIOBE [Concomitant]
     Indication: PRODUCT USED FOR UNKNOWN INDICATION
     Dosage: 1 DF, QD
     Route: 065

REACTIONS (9)
  - Plastic surgery [Unknown]
  - Abdominal discomfort [Unknown]
  - Femur fracture [Recovered/Resolved with Sequelae]
  - Neoplasm skin [Unknown]
  - Laboratory test abnormal [Unknown]
  - Bone pain [Recovered/Resolved with Sequelae]
  - Haemorrhagic anaemia [Recovered/Resolved]
  - Osteopenia [Unknown]
  - Abdominal pain [Unknown]

NARRATIVE: CASE EVENT DATE: 2004
